FAERS Safety Report 16108618 (Version 1)
Quarter: 2019Q1

REPORT INFORMATION
  Report Type: Spontaneous
  Country: NL (occurrence: NL)
  Receive Date: 20190323
  Receipt Date: 20190323
  Transmission Date: 20190418
  Serious: Yes (Other)
  Sender: FDA-Public Use
  Company Number: NL-ACCORD-114923

PATIENT
  Age: 77 Year
  Sex: Male

DRUGS (14)
  1. METOPROLOL. [Suspect]
     Active Substance: METOPROLOL
     Indication: PRODUCT USED FOR UNKNOWN INDICATION
     Dosage: 50 MG, 2X/DAY (IN THE MORNING AND IN THE EVENING)
     Route: 065
  2. PARACETAMOL [Concomitant]
     Active Substance: ACETAMINOPHEN
     Dosage: UNK
     Route: 065
  3. TAMSULOSIN/TAMSULOSIN HYDROCHLORIDE [Suspect]
     Active Substance: TAMSULOSIN HYDROCHLORIDE
     Indication: PRODUCT USED FOR UNKNOWN INDICATION
     Dosage: 0.4 MG, 1X/DAY (1 UNIT)
     Route: 065
  4. TOLBUTAMIDE/TOLBUTAMIDE SODIUM [Concomitant]
     Dosage: 1000 MG, 1X/DAY
     Route: 065
  5. DIPYRIDAMOLE. [Suspect]
     Active Substance: DIPYRIDAMOLE
     Indication: PRODUCT USED FOR UNKNOWN INDICATION
     Dosage: 200 MG, 1X/DAY
     Route: 065
  6. PANTOPRAZOLE/PANTOPRAZOLE SODIUM [Concomitant]
     Dosage: 40 MG, 1X/DAY
     Route: 065
  7. CALCIUM/COLECALCIFEROL [Concomitant]
     Dosage: 500MG/800 IU, 1X/DAY
     Route: 065
  8. DIGOXIN. [Suspect]
     Active Substance: DIGOXIN
     Indication: PRODUCT USED FOR UNKNOWN INDICATION
     Dosage: 0.13 MG, 1X/DAY
     Route: 065
  9. PANTOPRAZOLE SODIUM SESQUIHYDRATE [Concomitant]
     Active Substance: PANTOPRAZOLE SODIUM
     Dosage: UNK
     Route: 065
  10. DABIGATRAN/DABIGATRAN ETEXILATE [Concomitant]
     Dosage: 300 MG, 1X/DAY
     Route: 065
     Dates: start: 2014
  11. ATORVASTATIN/ATORVASTATIN CALCIUM [Suspect]
     Active Substance: ATORVASTATIN CALCIUM
     Indication: PRODUCT USED FOR UNKNOWN INDICATION
     Dosage: 40 MG, 1X/DAY
     Route: 065
  12. METFORMIN [Concomitant]
     Active Substance: METFORMIN HYDROCHLORIDE
     Dosage: 1500 MG, 1X/DAY
     Route: 065
  13. DIGOXIN. [Suspect]
     Active Substance: DIGOXIN
     Indication: PRODUCT USED FOR UNKNOWN INDICATION
     Dosage: 0.06 MG, 1X/DAY AND (0.13 MG, 1X/DAY)
     Route: 065
  14. ISOSORBIDE. [Concomitant]
     Active Substance: ISOSORBIDE
     Dosage: 25 MG, 1X/DAY
     Route: 065

REACTIONS (4)
  - Gastrointestinal disorder [Recovered/Resolved]
  - Dizziness [Recovering/Resolving]
  - Cognitive disorder [Unknown]
  - Drug ineffective [Unknown]
